FAERS Safety Report 7305749-9 (Version None)
Quarter: 2011Q1

REPORT INFORMATION
  Report Type: 
  Country: None (occurrence: None)
  Receive Date: 20110222
  Receipt Date: 20110215
  Transmission Date: 20110831
  Serious: Yes (Other)
  Sender: FDA-Public Use
  Company Number: B0691727A

PATIENT
  Sex: Female
  Weight: 66 kg

DRUGS (8)
  1. AMLOR [Suspect]
     Dates: start: 20101123
  2. DIFFU K [Concomitant]
  3. ALUMINUM HYDROXIDE AND MAGNESIUM TRISILICATE [Concomitant]
     Indication: GASTROINTESTINAL DISORDER
     Dates: start: 20110105
  4. INDAPAMIDE [Concomitant]
  5. CACIT VIT D3 [Concomitant]
  6. FLANID [Concomitant]
     Indication: TOOTH ABSCESS
     Dates: start: 20101123, end: 20101206
  7. MISSILOR [Concomitant]
     Indication: TOOTH ABSCESS
     Dates: start: 20101123, end: 20101206
  8. PAZOPANIB [Suspect]
     Indication: DERMATOFIBROSARCOMA
     Dosage: 800MG PER DAY
     Route: 048
     Dates: start: 20100702, end: 20110126

REACTIONS (3)
  - BLOOD BILIRUBIN INCREASED [None]
  - ALANINE AMINOTRANSFERASE INCREASED [None]
  - HEPATOCELLULAR INJURY [None]
